FAERS Safety Report 9846982 (Version 1)
Quarter: 2014Q1

REPORT INFORMATION
  Report Type: Spontaneous
  Country: IT (occurrence: IT)
  Receive Date: 20140127
  Receipt Date: 20140127
  Transmission Date: 20141002
  Serious: Yes (Hospitalization)
  Sender: FDA-Public Use
  Company Number: IT-NOVOPROD-398412

PATIENT
  Age: 7 Year
  Sex: Male

DRUGS (2)
  1. LEVEMIR FLEXPEN [Suspect]
     Indication: DIABETES MELLITUS
     Dosage: 6 U, QD
     Route: 058
     Dates: start: 20130101
  2. NOVORAPID FLEXPEN [Suspect]
     Indication: DIABETES MELLITUS
     Dosage: 3.5 U, QD
     Route: 065
     Dates: start: 20130101

REACTIONS (3)
  - Tonic clonic movements [Unknown]
  - Loss of consciousness [Unknown]
  - Hypoglycaemia [Unknown]
